FAERS Safety Report 9848482 (Version 1)
Quarter: 2013Q4

REPORT INFORMATION
  Report Type: Spontaneous
  Country: US (occurrence: None)
  Receive Date: 20131224
  Receipt Date: 20131224
  Transmission Date: 20140711
  Serious: Yes (Other)
  Sender: FDA-Public Use
  Company Number: PHEH2013US002629

PATIENT
  Age: 68 Year
  Sex: Female
  Weight: 72.6 kg

DRUGS (1)
  1. EXJADE (*CGP 72670*) DISPERSIBLE TABLET, 500MG [Suspect]
     Indication: MYELODYSPLASTIC SYNDROME
     Route: 048
     Dates: start: 20060101, end: 20130129

REACTIONS (4)
  - Hepatic enzyme increased [None]
  - Blood creatinine increased [None]
  - Aspartate aminotransferase increased [None]
  - Alanine aminotransferase increased [None]
